FAERS Safety Report 8367943-8 (Version None)
Quarter: 2012Q2

REPORT INFORMATION
  Report Type: 
  Country: None (occurrence: None)
  Receive Date: 20120517
  Receipt Date: 20120509
  Transmission Date: 20120825
  Serious: Yes (Hospitalization)
  Sender: FDA-Public Use
  Company Number: US-MPIJNJ-2012-01916

PATIENT
  Sex: Male
  Weight: 74.83 kg

DRUGS (4)
  1. VELCADE [Suspect]
     Indication: MULTIPLE MYELOMA
     Dosage: 2.5 MG, CYCLIC
     Route: 042
     Dates: start: 20111004, end: 20111115
  2. CYTOXAN [Suspect]
     Indication: MULTIPLE MYELOMA
     Dosage: 1750 MG, CYCLIC
     Route: 042
     Dates: start: 20111004
  3. DECADRON [Suspect]
     Dosage: 40 MG, CYCLIC
     Route: 048
     Dates: start: 20111005
  4. DECADRON [Suspect]
     Indication: MULTIPLE MYELOMA
     Dosage: 40 MG, CYCLIC
     Route: 042
     Dates: start: 20111005

REACTIONS (2)
  - DIVERTICULAR PERFORATION [None]
  - ABDOMINAL PAIN [None]
